FAERS Safety Report 25792628 (Version 2)
Quarter: 2025Q4

REPORT INFORMATION
  Report Type: Spontaneous
  Country: US (occurrence: US)
  Receive Date: 20250911
  Receipt Date: 20251003
  Transmission Date: 20260118
  Serious: No
  Sender: CSL BEHRING
  Company Number: US-BEH-2025218085

PATIENT
  Age: 68 Year
  Sex: Female

DRUGS (6)
  1. PRIVIGEN [Suspect]
     Active Substance: HUMAN IMMUNOGLOBULIN G
     Indication: Dermatomyositis
     Dosage: 110 G, Q3W
     Route: 042
     Dates: start: 20250218
  2. PRIVIGEN [Suspect]
     Active Substance: HUMAN IMMUNOGLOBULIN G
     Dosage: UNK
     Route: 042
  3. PRIVIGEN [Suspect]
     Active Substance: HUMAN IMMUNOGLOBULIN G
     Dosage: UNK
     Route: 042
  4. PRIVIGEN [Suspect]
     Active Substance: HUMAN IMMUNOGLOBULIN G
     Dosage: UNK
     Route: 042
  5. PRIVIGEN [Suspect]
     Active Substance: HUMAN IMMUNOGLOBULIN G
     Dosage: UNK
     Route: 065
     Dates: start: 20250812
  6. LASIX [Concomitant]
     Active Substance: FUROSEMIDE
     Dosage: 40 MG, QD

REACTIONS (8)
  - Dyspnoea [Unknown]
  - Fluid retention [Unknown]
  - Dyspnoea [Unknown]
  - Oedema peripheral [Unknown]
  - Peripheral swelling [Unknown]
  - Pollakiuria [Unknown]
  - Weight increased [Unknown]
  - Product use in unapproved indication [Unknown]

NARRATIVE: CASE EVENT DATE: 20250218
